FAERS Safety Report 4880740-0 (Version None)
Quarter: 2006Q1

REPORT INFORMATION
  Report Type: 
  Country: None (occurrence: None)
  Receive Date: 20060113
  Receipt Date: 20050401
  Transmission Date: 20060701
  Serious: Yes (Hospitalization)
  Sender: FDA-Public Use
  Company Number: FR-BOEHRINGER INGELHEIM PHARMACEUTICALS, INC.-2005-FF-00234FF

PATIENT
  Age: 75 Year
  Sex: Female
  Weight: 60 kg

DRUGS (5)
  1. ASASANTINE LP [Suspect]
     Route: 048
  2. NOOTROPYL [Concomitant]
     Route: 048
  3. FLECAINIDE ACETATE [Concomitant]
     Route: 048
  4. LAMICTAL [Concomitant]
     Indication: EPILEPSY
     Route: 048
     Dates: start: 20041130, end: 20050106
  5. APROVEL [Concomitant]
     Route: 048

REACTIONS (9)
  - ANAEMIA [None]
  - CONJUNCTIVITIS [None]
  - EOSINOPHILIA [None]
  - LEUKOCYTOSIS [None]
  - PYREXIA [None]
  - RASH ERYTHEMATOUS [None]
  - RENAL FAILURE [None]
  - SKIN EXFOLIATION [None]
  - THROMBOCYTOPENIA [None]
